FAERS Safety Report 22535141 (Version 2)
Quarter: 2023Q2

REPORT INFORMATION
  Report Type: Report from Study
  Country: US (occurrence: US)
  Receive Date: 20230608
  Receipt Date: 20230626
  Transmission Date: 20230721
  Serious: Yes (Hospitalization, Other)
  Sender: FDA-Public Use
  Company Number: US-002147023-NVSC2023US129948

PATIENT
  Sex: Male

DRUGS (1)
  1. ENTRESTO [Suspect]
     Active Substance: SACUBITRIL\VALSARTAN
     Indication: Product used for unknown indication
     Dosage: 0.5 DOSAGE FORM, BID (24/26 MG) (STARTED 4 MONTHS AGO)
     Route: 065

REACTIONS (6)
  - Pneumonia legionella [Unknown]
  - Atrial fibrillation [Unknown]
  - Underdose [Unknown]
  - Amnesia [Unknown]
  - Sluggishness [Unknown]
  - Wrong technique in product usage process [Unknown]
